FAERS Safety Report 26015617 (Version 1)
Quarter: 2025Q4

REPORT INFORMATION
  Report Type: Spontaneous
  Country: US (occurrence: US)
  Receive Date: 20251109
  Receipt Date: 20251109
  Transmission Date: 20260117
  Serious: Yes (Hospitalization, Other)
  Sender: TWI PHARMACEUTICALS
  Company Number: US-TWI PHARMACEUTICAL, INC-20250701000

PATIENT
  Sex: Male

DRUGS (11)
  1. LISINOPRIL [Suspect]
     Active Substance: LISINOPRIL
     Indication: Hormone-refractory prostate cancer
     Dosage: UNK
     Route: 065
  2. LORIGERLIMAB [Concomitant]
     Active Substance: LORIGERLIMAB
     Indication: Hormone-refractory prostate cancer
     Dosage: 6 MILLIGRAM PER KILOGRAM, Q3W
     Route: 042
     Dates: start: 20240717, end: 20240717
  3. LORIGERLIMAB [Concomitant]
     Active Substance: LORIGERLIMAB
     Dosage: 6 MILLIGRAM PER KILOGRAM, Q3W
     Route: 042
     Dates: start: 20250422, end: 20250422
  4. LORIGERLIMAB [Concomitant]
     Active Substance: LORIGERLIMAB
     Dosage: UNK
     Route: 065
     Dates: start: 20250703
  5. DOCETAXEL [Concomitant]
     Active Substance: DOCETAXEL
     Indication: Hormone-refractory prostate cancer
     Dosage: 75 UNK, Q3W (MILLIGRAM PER SQUARE METER)
     Route: 042
     Dates: start: 20240717, end: 20240717
  6. DOCETAXEL [Concomitant]
     Active Substance: DOCETAXEL
     Dosage: 75 UNK (MILLIGRAM PER SQUARE METER), Q3W
     Route: 042
     Dates: start: 20250130, end: 20250130
  7. DOCETAXEL [Concomitant]
     Active Substance: DOCETAXEL
     Dosage: UNK
     Route: 065
     Dates: start: 20250703
  8. PREDNISONE [Concomitant]
     Active Substance: PREDNISONE
     Indication: Hormone-refractory prostate cancer
     Dosage: 5 MG, QOD
     Route: 048
     Dates: start: 20240717, end: 20240717
  9. PREDNISONE [Concomitant]
     Active Substance: PREDNISONE
     Dosage: 5 MG
     Route: 065
     Dates: start: 20240717, end: 20250401
  10. PREDNISONE [Concomitant]
     Active Substance: PREDNISONE
     Dosage: 5 MG, QOD
     Route: 048
     Dates: start: 20250401, end: 20250401
  11. PREDNISONE [Concomitant]
     Active Substance: PREDNISONE
     Dosage: UNK
     Route: 065
     Dates: start: 20250703

REACTIONS (1)
  - Angioedema [Recovered/Resolved]

NARRATIVE: CASE EVENT DATE: 20250702
